FAERS Safety Report 4970701-5 (Version None)
Quarter: 2006Q2

REPORT INFORMATION
  Report Type: 
  Country: None (occurrence: None)
  Receive Date: 20060412
  Receipt Date: 20060403
  Transmission Date: 20061013
  Serious: Yes (Hospitalization)
  Sender: FDA-Public Use
  Company Number: PHNR2006AU00661

PATIENT
  Sex: Female

DRUGS (10)
  1. LASIX [Concomitant]
  2. LANOXIN [Concomitant]
  3. LANSOPRAZOLE [Concomitant]
  4. ZOCOR [Concomitant]
  5. SINEMET CR [Concomitant]
     Dosage: 200 MG (FREQUENCY NOT SPECIFIED)
  6. CABASER [Concomitant]
  7. DIAZEPAM [Concomitant]
  8. WARFARIN SODIUM [Concomitant]
  9. LEXAPRO [Concomitant]
  10. STALEVO 100 [Suspect]
     Indication: PARKINSON'S DISEASE
     Dosage: 6 TABLETS (100/25/200MG) PER DAY
     Dates: start: 20060130

REACTIONS (4)
  - AMNESIA [None]
  - CONFUSIONAL STATE [None]
  - FALL [None]
  - HALLUCINATION [None]
